FAERS Safety Report 10313297 (Version 2)
Quarter: 2016Q2

REPORT INFORMATION
  Report Type: Spontaneous
  Country: US (occurrence: US)
  Receive Date: 20140718
  Receipt Date: 20160418
  Transmission Date: 20160815
  Serious: Yes (Hospitalization)
  Sender: FDA-Public Use
  Company Number: US-BAYER-2014-107225

PATIENT
  Age: 22 Year
  Sex: Female
  Weight: 108.84 kg

DRUGS (1)
  1. MIRENA [Suspect]
     Active Substance: LEVONORGESTREL
     Indication: CONTRACEPTION
     Dosage: 20 MCG/24HR, CONT
     Route: 015
     Dates: start: 20070525, end: 20120203

REACTIONS (8)
  - Procedural pain [Not Recovered/Not Resolved]
  - Injury [Not Recovered/Not Resolved]
  - Embedded device [Not Recovered/Not Resolved]
  - Medical device pain [Not Recovered/Not Resolved]
  - Post procedural discomfort [None]
  - Abdominal pain lower [Not Recovered/Not Resolved]
  - Device issue [None]
  - Device use error [None]

NARRATIVE: CASE EVENT DATE: 2009
